APPROVED DRUG PRODUCT: PEGANONE
Active Ingredient: ETHOTOIN
Strength: 500MG
Dosage Form/Route: TABLET;ORAL
Application: N010841 | Product #003
Applicant: RECORDATI RARE DISEASES INC
Approved: Approved Prior to Jan 1, 1982 | RLD: No | RS: No | Type: DISCN